FAERS Safety Report 10209813 (Version 10)
Quarter: 2016Q1

REPORT INFORMATION
  Report Type: Spontaneous
  Country: JP (occurrence: JP)
  Receive Date: 20140602
  Receipt Date: 20160128
  Transmission Date: 20160525
  Serious: Yes (Life-Threatening, Other)
  Sender: FDA-Public Use
  Company Number: PHHY2014JP065997

PATIENT
  Age: 77 Year
  Sex: Female
  Weight: 42 kg

DRUGS (9)
  1. ALDACTONE A [Concomitant]
     Active Substance: SPIRONOLACTONE
     Indication: FLUID REPLACEMENT
     Dosage: 25 MG, BID
     Route: 048
     Dates: start: 20131212
  2. GLIVEC [Suspect]
     Active Substance: IMATINIB MESYLATE
     Dosage: 300 MG, QD
     Route: 048
     Dates: start: 20131107, end: 20140423
  3. CELECOX [Concomitant]
     Active Substance: CELECOXIB
     Indication: PRODUCT USED FOR UNKNOWN INDICATION
     Dosage: 100 MG, BID
     Route: 048
     Dates: end: 20140424
  4. LASIX [Concomitant]
     Active Substance: FUROSEMIDE
     Indication: FLUID REPLACEMENT
     Dosage: 20 MG, BID
     Route: 048
     Dates: start: 20131212
  5. LYRICA [Concomitant]
     Active Substance: PREGABALIN
     Indication: PRODUCT USED FOR UNKNOWN INDICATION
     Dosage: 75 MG, QD
     Route: 048
     Dates: end: 20140424
  6. GLIVEC [Suspect]
     Active Substance: IMATINIB MESYLATE
     Indication: GASTROINTESTINAL STROMAL TUMOUR
     Dosage: 300 MG, QD
     Route: 048
     Dates: start: 200701, end: 201103
  7. OXYCONTIN [Concomitant]
     Active Substance: OXYCODONE HYDROCHLORIDE
     Indication: PRODUCT USED FOR UNKNOWN INDICATION
     Dosage: 20 MG, BID
     Route: 048
     Dates: end: 20140424
  8. TRAMAL [Concomitant]
     Active Substance: TRAMADOL
     Indication: PRODUCT USED FOR UNKNOWN INDICATION
     Dosage: 25 MG, QID
     Route: 048
     Dates: end: 20140424
  9. OPALMON [Concomitant]
     Active Substance: LIMAPROST
     Indication: PRODUCT USED FOR UNKNOWN INDICATION
     Dosage: 5 UG, TID
     Route: 048
     Dates: end: 20140424

REACTIONS (4)
  - Chest pain [Unknown]
  - Pericardial effusion [Recovered/Resolved]
  - Dyspnoea [Unknown]
  - Hypothyroidism [Recovered/Resolved]

NARRATIVE: CASE EVENT DATE: 20140414
